FAERS Safety Report 17167532 (Version 1)
Quarter: 2019Q4

REPORT INFORMATION
  Report Type: Spontaneous
  Country: RS (occurrence: RS)
  Receive Date: 20191218
  Receipt Date: 20191218
  Transmission Date: 20200122
  Serious: Yes (Other)
  Sender: FDA-Public Use
  Company Number: RS-009507513-1912SRB007582

PATIENT
  Age: 40 Year
  Sex: Male

DRUGS (2)
  1. KEYTRUDA [Suspect]
     Active Substance: PEMBROLIZUMAB
     Indication: METASTATIC MALIGNANT MELANOMA
     Dosage: UNK, CYCLICAL
     Dates: start: 201905
  2. KEYTRUDA [Suspect]
     Active Substance: PEMBROLIZUMAB
     Indication: METASTATIC MALIGNANT MELANOMA
     Dosage: UNK UNK, CYCLICAL
     Dates: start: 201709, end: 201904

REACTIONS (11)
  - Hypothyroidism [Unknown]
  - Arthritis [Unknown]
  - Hyperthyroidism [Unknown]
  - Vitiligo [Unknown]
  - Ketoacidosis [Unknown]
  - Tenosynovitis [Unknown]
  - Thrombosis [Unknown]
  - Latent autoimmune diabetes in adults [Unknown]
  - Vasculitis [Unknown]
  - Hair colour changes [Unknown]
  - Colitis [Unknown]

NARRATIVE: CASE EVENT DATE: 201712
